FAERS Safety Report 9656893 (Version 2)
Quarter: 2013Q4

REPORT INFORMATION
  Report Type: Report from Study
  Country: BR (occurrence: BR)
  Receive Date: 20131030
  Receipt Date: 20131030
  Transmission Date: 20140711
  Serious: Yes (Death, Hospitalization, Other)
  Sender: FDA-Public Use
  Company Number: BR-ABBVIE-08P-020-0475648-00

PATIENT
  Age: 59 Year
  Sex: Female
  Weight: 60 kg

DRUGS (3)
  1. HUMIRA 40 MG/ 0.8 ML PRE-FILLED SYRINGE [Suspect]
     Indication: RHEUMATOID ARTHRITIS
     Route: 058
     Dates: start: 2003, end: 200705
  2. UNKNOWN [Concomitant]
     Indication: HYPERTENSION
  3. UNKNOWN MEDICATION [Concomitant]
     Indication: THYROID DISORDER

REACTIONS (6)
  - Drug-induced liver injury [Fatal]
  - Pneumonia [Fatal]
  - Infection [Fatal]
  - Haematochezia [Recovered/Resolved]
  - Blister [Unknown]
  - Rheumatoid arthritis [Unknown]
